FAERS Safety Report 10004594 (Version 1)
Quarter: 2014Q1

REPORT INFORMATION
  Report Type: Spontaneous
  Country: GB (occurrence: GB)
  Receive Date: 20140312
  Receipt Date: 20140312
  Transmission Date: 20141002
  Serious: Yes (Other)
  Sender: FDA-Public Use
  Company Number: GB-PFIZER INC-2014067627

PATIENT
  Sex: 0

DRUGS (5)
  1. EXEMESTANE [Suspect]
     Indication: BREAST CANCER METASTATIC
     Dosage: UNK
     Dates: start: 20121214
  2. EVEROLIMUS [Suspect]
     Indication: BREAST CANCER METASTATIC
     Dosage: 10 MG, 1X/DAY
     Route: 048
     Dates: start: 20130113
  3. EVEROLIMUS [Suspect]
     Dosage: 5 MG, ONCE PER DAY
     Route: 048
  4. XGEVA [Concomitant]
     Indication: METASTASES TO BONE
     Dosage: UNK
  5. ZOMETA [Concomitant]
     Indication: METASTASES TO BONE
     Dosage: UNK

REACTIONS (18)
  - Mouth ulceration [Unknown]
  - Nail disorder [Unknown]
  - Diarrhoea [Unknown]
  - Fatigue [Recovered/Resolved]
  - Pleural effusion [Unknown]
  - Headache [Unknown]
  - Decreased appetite [Unknown]
  - Nausea [Recovered/Resolved]
  - Facial pain [Unknown]
  - Rash [Recovered/Resolved]
  - Malaise [Recovered/Resolved]
  - Pain in jaw [Unknown]
  - Oral pain [Unknown]
  - Pain of skin [Unknown]
  - Abdominal pain upper [Unknown]
  - Weight decreased [Unknown]
  - Disease progression [Unknown]
  - Breast cancer metastatic [Unknown]
